FAERS Safety Report 9813485 (Version 3)
Quarter: 2014Q2

REPORT INFORMATION
  Report Type: Spontaneous
  Country: US (occurrence: None)
  Receive Date: 20140109
  Receipt Date: 20140429
  Transmission Date: 20141212
  Serious: Yes (Hospitalization)
  Sender: FDA-Public Use
  Company Number: US-000899

PATIENT
  Age: 64 Year
  Sex: Female

DRUGS (17)
  1. GATTEX [Suspect]
     Indication: SHORT-BOWEL SYNDROME
     Dosage: (0.45 ML, QD, STERN/VOLUM: 0.45 ML FREQU: ONCE A DAY SUBCUTANEOUS)
     Route: 058
     Dates: start: 20131011, end: 20131224
  2. LEVAQUIN [Concomitant]
  3. POTASSIUM [Concomitant]
  4. ATIVAN [Concomitant]
  5. CELEXA /00582602/ [Concomitant]
  6. DILAUDID [Concomitant]
  7. LIPITOR [Concomitant]
  8. CLARITIN /00917501/ [Concomitant]
  9. METOPROLOL [Concomitant]
  10. MULTIVITAMINS [Concomitant]
  11. MUCINEX [Concomitant]
  12. SANDOSTATIN [Concomitant]
  13. OXYCODONE [Concomitant]
  14. PIROXICAM [Concomitant]
  15. PROTONIX [Concomitant]
  16. SOLUTIONS FOR PARENTERAL NUTRITION [Concomitant]
  17. FAT EMULSIONS [Concomitant]

REACTIONS (5)
  - Dyspnoea [None]
  - Pain [None]
  - Dehydration [None]
  - Urinary tract infection [None]
  - Drug dose omission [None]
